FAERS Safety Report 5156055-2 (Version None)
Quarter: 2006Q4

REPORT INFORMATION
  Report Type: 
  Country: None (occurrence: None)
  Receive Date: 20061114
  Receipt Date: 20061101
  Transmission Date: 20070319
  Serious: Yes (Other)
  Sender: FDA-Public Use
  Company Number: CERZ-11384

PATIENT
  Age: 75 Year
  Sex: Female
  Weight: 80.7403 kg

DRUGS (3)
  1. CEREZYME [Suspect]
     Indication: GAUCHER'S DISEASE
     Dates: start: 20061001
  2. CEREZYME [Suspect]
     Indication: GAUCHER'S DISEASE
     Dosage: 500 UNITS Q2WKS IV
     Route: 042
     Dates: start: 20060801, end: 20060901
  3. CEREZYME [Suspect]
     Indication: GAUCHER'S DISEASE
     Dosage: 5000 UNITS Q2WKS IV
     Route: 042
     Dates: start: 20020101, end: 20060501

REACTIONS (5)
  - INFUSION RELATED REACTION [None]
  - METASTASES TO CENTRAL NERVOUS SYSTEM [None]
  - METASTASES TO LUNG [None]
  - METASTASES TO LYMPH NODES [None]
  - METASTATIC NEOPLASM [None]
